FAERS Safety Report 5767341-7 (Version None)
Quarter: 2008Q2

REPORT INFORMATION
  Report Type: 
  Country: None (occurrence: None)
  Receive Date: 20080612
  Receipt Date: 20080604
  Transmission Date: 20081010
  Serious: Yes (Disabling)
  Sender: FDA-Public Use
  Company Number: A0716894A

PATIENT
  Age: 66 Year
  Sex: Male

DRUGS (12)
  1. IMITREX [Suspect]
     Indication: MIGRAINE
     Dosage: 100MG AS REQUIRED
     Route: 048
     Dates: start: 20050101
  2. ZOCOR [Concomitant]
     Dosage: 10MG AT NIGHT
     Route: 048
     Dates: start: 19980101
  3. XANAX [Concomitant]
     Indication: ANXIETY
     Route: 048
     Dates: start: 20080101
  4. PHENERGAN [Concomitant]
     Indication: NAUSEA
     Route: 048
     Dates: start: 19980101
  5. VICODIN [Concomitant]
     Indication: PAIN
     Route: 048
     Dates: start: 20080101
  6. FIORINAL [Concomitant]
     Indication: HEADACHE
     Route: 048
     Dates: start: 20080101
  7. DILTIAZEM [Concomitant]
     Indication: BLOOD PRESSURE
     Dosage: 360MG PER DAY
     Route: 048
     Dates: start: 19940101
  8. LISINOPRIL [Concomitant]
     Indication: BLOOD PRESSURE
     Dosage: 20MG PER DAY
     Route: 048
     Dates: start: 20000101, end: 20080301
  9. CLONIDINE [Concomitant]
     Indication: BLOOD PRESSURE
     Dosage: .1MG THREE TIMES PER DAY
     Route: 048
     Dates: start: 20080328
  10. MAXZIDE [Concomitant]
     Indication: BLOOD PRESSURE
     Dosage: 25MG PER DAY
     Route: 048
     Dates: start: 20080101
  11. PRAZOSIN HCL [Concomitant]
     Indication: BLOOD PRESSURE
     Dosage: 5MG PER DAY
     Route: 048
     Dates: start: 20080101
  12. FLUOXETINE HCL [Concomitant]
     Indication: DEPRESSION
     Dosage: 20MG PER DAY
     Route: 048
     Dates: start: 20080101

REACTIONS (2)
  - DRUG INEFFECTIVE [None]
  - MIGRAINE [None]
